FAERS Safety Report 9285166 (Version 1)
Quarter: 2013Q2

REPORT INFORMATION
  Report Type: Spontaneous
  Country: GB (occurrence: GB)
  Receive Date: 20130513
  Receipt Date: 20130513
  Transmission Date: 20140414
  Serious: Yes (Other)
  Sender: FDA-Public Use
  Company Number: GB-JNJFOC-20130504090

PATIENT
  Age: 81 Year
  Sex: Female
  Weight: 54 kg

DRUGS (2)
  1. XARELTO [Suspect]
     Indication: ATRIAL FIBRILLATION
     Route: 048
     Dates: start: 20130405
  2. XARELTO [Suspect]
     Indication: CEREBROVASCULAR ACCIDENT PROPHYLAXIS
     Route: 048
     Dates: start: 20130405

REACTIONS (5)
  - Haemoptysis [Not Recovered/Not Resolved]
  - Fatigue [Not Recovered/Not Resolved]
  - Listless [Unknown]
  - Productive cough [Unknown]
  - Weight decreased [Not Recovered/Not Resolved]
